FAERS Safety Report 16927029 (Version 1)
Quarter: 2019Q4

REPORT INFORMATION
  Report Type: Spontaneous
  Country: GB (occurrence: GB)
  Receive Date: 20191016
  Receipt Date: 20191016
  Transmission Date: 20200122
  Serious: Yes (Other)
  Sender: FDA-Public Use
  Company Number: GB-MYLANLABS-2019M1096960

PATIENT
  Age: 75 Year
  Sex: Female
  Weight: 86 kg

DRUGS (11)
  1. SALBUTAMOL [Concomitant]
     Active Substance: ALBUTEROL
     Dosage: INHALE 1-2 DOSES UP TO FOUR TIMES A DAY
     Route: 055
     Dates: start: 20180516
  2. RANITIDINE. [Suspect]
     Active Substance: RANITIDINE
     Indication: PRODUCT USED FOR UNKNOWN INDICATION
     Dosage: 300 MILLIGRAM, QD (TOOK AT MIDNIGHT)
     Dates: start: 20190715
  3. LEVOTHYROXINE. [Concomitant]
     Active Substance: LEVOTHYROXINE
     Dosage: 1 DOSAGE FORM, QD (MORNING)
     Dates: start: 20180516
  4. PARACETAMOL [Concomitant]
     Active Substance: ACETAMINOPHEN
     Dosage: TAKE ONE OR TWO, UP TO FOUR TIMES A DAY
     Dates: start: 20180703
  5. TRISEQUENS                         /00441501/ [Concomitant]
     Dosage: 1 DOSAGE FORM, QD
     Dates: start: 20180516
  6. LANSOPRAZOLE. [Concomitant]
     Active Substance: LANSOPRAZOLE
     Dosage: 1 DOSAGE FORM, QD
     Dates: start: 20180516
  7. QUININE [Concomitant]
     Active Substance: QUININE
     Dosage: 1 DOSAGE FORM, QD (NIGHT)
     Dates: start: 20180516
  8. CHLORPHENAMINE [Concomitant]
     Active Substance: CHLORPHENIRAMINE MALEATE
     Dosage: 1 DOSAGE FORM (EVERY 4-6 HRS)
     Dates: start: 20190716
  9. PREDNISOLONE. [Concomitant]
     Active Substance: PREDNISOLONE
     Dosage: 8 DOSAGE FORM, QD
     Dates: start: 20190716
  10. ESTRIOL [Concomitant]
     Active Substance: ESTRIOL
     Dosage: 1 DOSAGE FORM, QW (INSERT ONE APPLICATOR, NIGHT)
     Dates: start: 20190212, end: 20190715
  11. QVAR [Concomitant]
     Active Substance: BECLOMETHASONE DIPROPIONATE
     Dosage: 4 DOSAGE FORM, QD (PUFFS)
     Route: 055
     Dates: start: 20180516

REACTIONS (1)
  - Asthma [Recovering/Resolving]

NARRATIVE: CASE EVENT DATE: 20190716
